FAERS Safety Report 6528649-0 (Version None)
Quarter: 2010Q1

REPORT INFORMATION
  Report Type: 
  Country: None (occurrence: None)
  Receive Date: 20100106
  Receipt Date: 20091231
  Transmission Date: 20100710
  Serious: Yes (Hospitalization)
  Sender: FDA-Public Use
  Company Number: US-MERCK-0907USA05807

PATIENT
  Age: 54 Year
  Sex: Female
  Weight: 49 kg

DRUGS (1)
  1. FOSAMAX [Suspect]
     Indication: OSTEOPOROSIS
     Route: 048
     Dates: start: 20010814, end: 20090331

REACTIONS (17)
  - ADVERSE DRUG REACTION [None]
  - ANAEMIA [None]
  - ANXIETY [None]
  - BLOOD OESTROGEN ABNORMAL [None]
  - FEMUR FRACTURE [None]
  - HYPOVOLAEMIA [None]
  - LUMBAR SPINAL STENOSIS [None]
  - MENSTRUAL DISORDER [None]
  - PANIC ATTACK [None]
  - POST PROCEDURAL HAEMORRHAGE [None]
  - PROCEDURAL HYPOTENSION [None]
  - SLEEP DISORDER [None]
  - SPINAL OSTEOARTHRITIS [None]
  - STRESS FRACTURE [None]
  - TACHYCARDIA [None]
  - TONSILLAR DISORDER [None]
  - UTERINE CERVIX STENOSIS [None]
